FAERS Safety Report 14966430 (Version 2)
Quarter: 2018Q2

REPORT INFORMATION
  Report Type: Report from Study
  Country: US (occurrence: US)
  Receive Date: 20180604
  Receipt Date: 20180606
  Transmission Date: 20180711
  Serious: No
  Sender: FDA-Public Use
  Company Number: PHEH2018US021366

PATIENT
  Age: 2 Year
  Sex: Female

DRUGS (1)
  1. AFINITOR DISPERZ [Suspect]
     Active Substance: EVEROLIMUS
     Indication: EPILEPSY
     Dosage: 2 MG, QD (ONCE DAILY)
     Route: 048
     Dates: start: 20180512

REACTIONS (1)
  - Drooling [Unknown]

NARRATIVE: CASE EVENT DATE: 20180513
